FAERS Safety Report 25993733 (Version 1)
Quarter: 2025Q4

REPORT INFORMATION
  Report Type: Spontaneous
  Country: KR (occurrence: KR)
  Receive Date: 20251104
  Receipt Date: 20251104
  Transmission Date: 20260117
  Serious: Yes (Other)
  Sender: ALKEM
  Company Number: KR-ALKEM LABORATORIES LIMITED-KR-ALKEM-2025-09445

PATIENT
  Age: 68 Year
  Sex: Male

DRUGS (2)
  1. CARBAMAZEPINE [Suspect]
     Active Substance: CARBAMAZEPINE
     Indication: Product used for unknown indication
     Dosage: UNK
     Route: 065
  2. CARBAMAZEPINE [Suspect]
     Active Substance: CARBAMAZEPINE
     Dosage: UNK (PAST REGIMEN)
     Route: 065

REACTIONS (2)
  - Stevens-Johnson syndrome [Unknown]
  - Pruritus [Unknown]
